FAERS Safety Report 8172814-6 (Version None)
Quarter: 2012Q1

REPORT INFORMATION
  Report Type: 
  Country: None (occurrence: None)
  Receive Date: 20120223
  Receipt Date: 20120214
  Transmission Date: 20120608
  Serious: Yes (Disabling)
  Sender: FDA-Public Use
  Company Number: 2011MA014827

PATIENT
  Age: 67 Year
  Sex: Female

DRUGS (7)
  1. ADCAL-D3 [Concomitant]
  2. RANELATE [Concomitant]
  3. RAMIPRIL [Suspect]
     Indication: HYPERTENSION
     Dosage: 5 MG; BID; PO
     Route: 048
     Dates: start: 20110407, end: 20111021
  4. STRONTIUM [Concomitant]
  5. BACLOFEN [Concomitant]
  6. INDAPAMIDE [Concomitant]
  7. ZOPICLONE [Concomitant]

REACTIONS (6)
  - NAIL DISORDER [None]
  - FUNGAL INFECTION [None]
  - INFECTION [None]
  - CARDIAC FAILURE [None]
  - COUGH [None]
  - ONYCHOMADESIS [None]
